FAERS Safety Report 20953852 (Version 1)
Quarter: 2022Q2

REPORT INFORMATION
  Report Type: Spontaneous
  Country: AU (occurrence: AU)
  Receive Date: 20220614
  Receipt Date: 20220614
  Transmission Date: 20220721
  Serious: Yes (Death, Hospitalization, Other)
  Sender: FDA-Public Use
  Company Number: AU-AMGEN-AUSSP2022097922

PATIENT
  Age: 72 Year
  Sex: Male

DRUGS (6)
  1. CARFILZOMIB [Suspect]
     Active Substance: CARFILZOMIB
     Indication: Plasma cell myeloma
     Dosage: UNK
     Route: 065
  2. CARFILZOMIB [Suspect]
     Active Substance: CARFILZOMIB
     Dosage: 56 MILLIGRAM/SQ. METER, DAYS 1, 2, 8, 9, 15, 16
     Route: 065
  3. LACTULOSE [Concomitant]
     Active Substance: LACTULOSE
     Indication: Ammonia increased
     Dosage: 30 MILLIGRAM 4 HRLY
  4. RIFAXIMIN [Concomitant]
     Active Substance: RIFAXIMIN
     Indication: Ammonia increased
     Dosage: UNK
  5. DEXAMETHASONE [Concomitant]
     Active Substance: DEXAMETHASONE
     Indication: Plasma cell myeloma
     Dosage: UNK
  6. DEXAMETHASONE [Concomitant]
     Active Substance: DEXAMETHASONE
     Dosage: 20 MILLIGRAM, DAYS 1, 2, 8, 9, 15, 16

REACTIONS (5)
  - Death [Fatal]
  - Hyperammonaemic encephalopathy [Unknown]
  - Plasma cell myeloma [Unknown]
  - Respiratory alkalosis [Unknown]
  - Blood calcium increased [Unknown]
